FAERS Safety Report 7864162-6 (Version None)
Quarter: 2011Q4

REPORT INFORMATION
  Report Type: 
  Country: None (occurrence: None)
  Receive Date: 20111028
  Receipt Date: 20111025
  Transmission Date: 20120403
  Serious: Yes (Death)
  Sender: FDA-Public Use
  Company Number: US-PFIZER INC-2011162199

PATIENT
  Sex: Male

DRUGS (1)
  1. SUTENT [Suspect]
     Indication: RENAL CANCER
     Dosage: 50 MG DAILY, 28 DAYS ON, 14 DAYS OFF
     Route: 048

REACTIONS (2)
  - MULTI-ORGAN FAILURE [None]
  - THROMBOCYTOPENIA [None]
